FAERS Safety Report 6073985-8 (Version None)
Quarter: 2009Q1

REPORT INFORMATION
  Report Type: 
  Country: None (occurrence: None)
  Receive Date: 20090209
  Receipt Date: 20090209
  Transmission Date: 20090719
  Serious: Yes (Life-Threatening)
  Sender: FDA-Public Use
  Company Number: None

PATIENT
  Age: 20 Year
  Sex: Female
  Weight: 62.1428 kg

DRUGS (2)
  1. TRIVORA-21 [Suspect]
     Indication: MENORRHAGIA
     Dates: start: 20060722, end: 20060808
  2. TRIVORA-21 [Suspect]
     Indication: MUSCLE SPASMS
     Dates: start: 20060722, end: 20060808

REACTIONS (2)
  - APPARENT DEATH [None]
  - DEEP VEIN THROMBOSIS [None]
